FAERS Safety Report 23399960 (Version 1)
Quarter: 2024Q1

REPORT INFORMATION
  Report Type: Spontaneous
  Country: FR (occurrence: FR)
  Receive Date: 20240114
  Receipt Date: 20240114
  Transmission Date: 20240410
  Serious: Yes (Other)
  Sender: FDA-Public Use
  Company Number: None

PATIENT
  Age: 70 Year

DRUGS (1)
  1. LINEZOLID [Suspect]
     Active Substance: LINEZOLID
     Indication: Mediastinitis
     Dosage: DURATION: 8 DAYS
     Route: 048
     Dates: start: 20210715, end: 20210723

REACTIONS (6)
  - Cytopenia [Recovered/Resolved]
  - Weight decreased [Recovered/Resolved]
  - Hyperlactacidaemia [Recovered/Resolved]
  - Nausea [Recovered/Resolved]
  - Decreased appetite [Recovered/Resolved]
  - Mitochondrial toxicity [Recovered/Resolved]

NARRATIVE: CASE EVENT DATE: 20210715
